FAERS Safety Report 8581710-1 (Version None)
Quarter: 2012Q2

REPORT INFORMATION
  Report Type: 
  Country: None (occurrence: None)
  Receive Date: 20120423
  Receipt Date: 20100811
  Transmission Date: 20120825
  Serious: Yes (Other)
  Sender: FDA-Public Use
  Company Number: PHHY2010US47482

PATIENT
  Age: 42 Year
  Sex: Male
  Weight: 77.6 kg

DRUGS (1)
  1. EXJADE [Suspect]
     Indication: POLYCYTHAEMIA VERA
     Dosage: 1500 MG, QD, ORAL 500 MG DAILY, ORAL
     Route: 048
     Dates: start: 20100710

REACTIONS (8)
  - OROPHARYNGEAL PAIN [None]
  - INFLUENZA LIKE ILLNESS [None]
  - RENAL IMPAIRMENT [None]
  - HEADACHE [None]
  - MYALGIA [None]
  - DIARRHOEA [None]
  - PYREXIA [None]
  - RASH [None]
